FAERS Safety Report 20491606 (Version 1)
Quarter: 2022Q1

REPORT INFORMATION
  Report Type: Spontaneous
  Country: US (occurrence: US)
  Receive Date: 20220218
  Receipt Date: 20220218
  Transmission Date: 20220423
  Serious: Yes (Disabling, Other)
  Sender: FDA-Public Use
  Company Number: US-TEVA-2022-US-2009972

PATIENT
  Age: 51 Year
  Sex: Female
  Weight: 81.64 kg

DRUGS (20)
  1. DOCETAXEL [Suspect]
     Active Substance: DOCETAXEL
     Indication: Breast cancer female
     Dosage: NUMBER OF CYCLE - 01
     Route: 042
     Dates: start: 20160315, end: 20160315
  2. DOCETAXEL [Suspect]
     Active Substance: DOCETAXEL
     Indication: HER2 positive breast cancer
  3. DOCETAXEL [Suspect]
     Active Substance: DOCETAXEL
     Indication: Breast cancer female
     Dosage: NUMBER OF CYCLE - 04, FREQUENCY - EVERY THREE WEEKS
     Route: 042
     Dates: start: 20160405, end: 20160614
  4. DOCETAXEL [Suspect]
     Active Substance: DOCETAXEL
     Indication: HER2 positive breast cancer
     Dosage: NUMBER OF CYCLE - 01
     Route: 042
     Dates: start: 20160707, end: 20160707
  5. CARBOPLATIN [Suspect]
     Active Substance: CARBOPLATIN
     Indication: Breast cancer female
     Dosage: NUMBER OF CYCLE - 04, FREQUENCY - EVERY THREE WEEKS
     Route: 042
     Dates: start: 20160315, end: 20160524
  6. CARBOPLATIN [Suspect]
     Active Substance: CARBOPLATIN
     Indication: HER2 positive breast cancer
     Dosage: NUMBER OF CYCLE - 01
     Route: 042
     Dates: start: 20160614, end: 20160614
  7. CARBOPLATIN [Suspect]
     Active Substance: CARBOPLATIN
     Dosage: NUMBER OF CYCLE - 01
     Route: 042
     Dates: start: 20160707, end: 20160707
  8. HERCEPTIN [Suspect]
     Active Substance: TRASTUZUMAB
     Indication: Breast cancer female
     Dosage: NUMBER OF CYCLE - 01
     Route: 042
     Dates: start: 20160315, end: 20160315
  9. HERCEPTIN [Suspect]
     Active Substance: TRASTUZUMAB
     Indication: HER2 positive breast cancer
     Dosage: NUMBER OF CYCLE - 04, FREQUENCY - EVERY THREE WEEKS
     Route: 042
     Dates: start: 20160405, end: 20160614
  10. HERCEPTIN [Suspect]
     Active Substance: TRASTUZUMAB
     Dosage: NUMBER OF CYCLE - 01
     Route: 042
     Dates: start: 20160707, end: 20160707
  11. PERJETA [Suspect]
     Active Substance: PERTUZUMAB
     Indication: Breast cancer female
     Dosage: NUMBER OF CYCLE - 01
     Route: 042
     Dates: start: 20160315, end: 20160315
  12. PERJETA [Suspect]
     Active Substance: PERTUZUMAB
     Indication: HER2 positive breast cancer
     Dosage: NUMBER OF CYCLE - 05, FREQUENCY - EVERY THREE WEEKS
     Route: 042
     Dates: start: 20160405, end: 20160707
  13. NEULASTA [Concomitant]
     Active Substance: PEGFILGRASTIM
     Indication: Breast cancer female
     Dosage: 6MG/0.6 ML INJECTION, NUMBER OF CYCLE - 06, FREQUENCY - EVERY THREE WEEKS
     Route: 058
     Dates: start: 20160316, end: 20160708
  14. NEULASTA [Concomitant]
     Active Substance: PEGFILGRASTIM
     Indication: HER2 positive breast cancer
  15. DYNAPEN [Concomitant]
     Active Substance: DICLOXACILLIN SODIUM
     Dosage: 62.5 MILLIGRAM DAILY;
     Route: 048
     Dates: start: 201603
  16. DECADRON [Concomitant]
     Active Substance: DEXAMETHASONE
     Dosage: 8 MILLIGRAM DAILY;
     Route: 048
     Dates: start: 201603
  17. COMPAZINE [Concomitant]
     Active Substance: PROCHLORPERAZINE MALEATE
     Indication: Prophylaxis of nausea and vomiting
     Dosage: 40 MILLIGRAM DAILY; AS NEEDED
     Route: 048
     Dates: start: 201603
  18. KEFLEX [Concomitant]
     Active Substance: CEPHALEXIN
     Dosage: 166.6667 MILLIGRAM DAILY;
     Route: 048
  19. MULTIHANCE [Concomitant]
     Active Substance: GADOBENATE DIMEGLUMINE
     Dosage: ONCE
     Route: 065
     Dates: start: 201603
  20. ZOFRAN [Concomitant]
     Active Substance: ONDANSETRON HYDROCHLORIDE
     Dosage: 16 MILLIGRAM DAILY; OCCURRENCES 21 DAYS
     Route: 048
     Dates: start: 20160315

REACTIONS (6)
  - Alopecia totalis [Not Recovered/Not Resolved]
  - Madarosis [Not Recovered/Not Resolved]
  - Neuropathy peripheral [Not Recovered/Not Resolved]
  - White blood cell count increased [Recovering/Resolving]
  - Hair texture abnormal [Not Recovered/Not Resolved]
  - Hair colour changes [Not Recovered/Not Resolved]

NARRATIVE: CASE EVENT DATE: 20160401
